FAERS Safety Report 7454201-9 (Version None)
Quarter: 2011Q2

REPORT INFORMATION
  Report Type: 
  Country: None (occurrence: None)
  Receive Date: 20110503
  Receipt Date: 20110426
  Transmission Date: 20111010
  Serious: No
  Sender: FDA-Public Use
  Company Number: US-BIOGENIDEC-2011BI015824

PATIENT
  Age: 55 Year
  Sex: Female

DRUGS (1)
  1. TYSABRI [Suspect]
     Indication: MULTIPLE SCLEROSIS
     Route: 042
     Dates: start: 20090321

REACTIONS (5)
  - DECREASED IMMUNE RESPONSIVENESS [None]
  - WEIGHT DECREASED [None]
  - ANAEMIA [None]
  - ASTHENIA [None]
  - HERPES ZOSTER [None]
